FAERS Safety Report 14713281 (Version 2)
Quarter: 2020Q3

REPORT INFORMATION
  Report Type: Report from Study
  Country: CA (occurrence: CA)
  Receive Date: 20180404
  Receipt Date: 20180411
  Transmission Date: 20201104
  Serious: Yes (Hospitalization, Other)
  Sender: FDA-Public Use
  Company Number: CA-ASTRAZENECA-2018SE40027

PATIENT
  Age: 70 Year
  Sex: Male

DRUGS (3)
  1. TREMELIMUMAB. [Suspect]
     Active Substance: TREMELIMUMAB
     Indication: UNDIFFERENTIATED SARCOMA
     Route: 042
     Dates: start: 20180213
  2. DURVALUMAB. [Suspect]
     Active Substance: DURVALUMAB
     Indication: UNDIFFERENTIATED SARCOMA
     Route: 042
     Dates: start: 20180213
  3. KETOROLAC [Concomitant]
     Active Substance: KETOROLAC TROMETHAMINE
     Route: 065
     Dates: start: 20180113

REACTIONS (2)
  - Diabetes mellitus [Unknown]
  - Diarrhoea [Unknown]

NARRATIVE: CASE EVENT DATE: 20180327
